FAERS Safety Report 6861026-1 (Version None)
Quarter: 2010Q3

REPORT INFORMATION
  Report Type: 
  Country: None (occurrence: None)
  Receive Date: 20100720
  Receipt Date: 20100708
  Transmission Date: 20110219
  Serious: Yes (Disabling, Other)
  Sender: FDA-Public Use
  Company Number: US-JNJFOC-20100703732

PATIENT
  Age: 69 Year
  Sex: Male

DRUGS (6)
  1. INTELENCE [Suspect]
     Indication: HIV INFECTION
     Route: 048
  2. INTELENCE [Suspect]
     Route: 048
  3. SAQUINAVIR [Interacting]
     Indication: HIV INFECTION
     Route: 065
  4. RITONAVIR [Interacting]
     Indication: HIV INFECTION
  5. TRUVADA [Concomitant]
     Route: 065
  6. RALTEGRAVIR [Concomitant]
     Route: 065

REACTIONS (5)
  - ATAXIA [None]
  - DRUG INEFFECTIVE [None]
  - DRUG INTERACTION [None]
  - INCORRECT DOSE ADMINISTERED [None]
  - MUSCULAR WEAKNESS [None]
